FAERS Safety Report 4502927-9 (Version None)
Quarter: 2004Q4

REPORT INFORMATION
  Report Type: 
  Country: None (occurrence: None)
  Receive Date: 20041112
  Receipt Date: 20041027
  Transmission Date: 20050328
  Serious: Yes (Hospitalization)
  Sender: FDA-Public Use
  Company Number: 2004-BP-10783BP

PATIENT
  Age: 55 Year
  Sex: Female
  Weight: 62.7 kg

DRUGS (21)
  1. MICARDIS [Suspect]
     Indication: PROPHYLAXIS AGAINST TRANSPLANT REJECTION
     Dosage: 80 MG (80 MG)
     Dates: start: 20040226, end: 20040310
  2. MICARDIS TABLETS (PLACEBO) [Suspect]
     Indication: PROPHYLAXIS AGAINST TRANSPLANT REJECTION
     Dosage: 80 MG (80 MG)
     Dates: start: 20040226, end: 20040310
  3. PROGRAF [Suspect]
     Indication: IMMUNOSUPPRESSION
     Dosage: 3 MG (1 MG)
     Dates: start: 19990804
  4. PREDNISONE [Suspect]
     Dosage: 5 MG (5 MG)
     Dates: start: 19990804
  5. RAPAMUNE [Concomitant]
  6. CELLCEPT [Concomitant]
  7. VALCYTE [Concomitant]
  8. CYTOVENE [Concomitant]
  9. BACTRIM [Concomitant]
  10. MYCELEX [Concomitant]
  11. FOSAMAX [Concomitant]
  12. NORVASC [Concomitant]
  13. ASPIRIN [Concomitant]
  14. CALCIUM [Concomitant]
  15. ESTROGEN [Concomitant]
  16. LANTUS [Concomitant]
  17. LISINOPRIL [Concomitant]
  18. TOPROL-XL [Concomitant]
  19. PREVACID [Concomitant]
  20. TEQUIN [Concomitant]
  21. INSULIN [Concomitant]

REACTIONS (14)
  - ABDOMINAL PAIN [None]
  - BACTERAEMIA [None]
  - BLOOD CREATININE INCREASED [None]
  - BLOOD GLUCOSE INCREASED [None]
  - BLOOD PRESSURE INCREASED [None]
  - GASTROENTERITIS PROTEUS [None]
  - IMPAIRED GASTRIC EMPTYING [None]
  - INFECTION [None]
  - LETHARGY [None]
  - NAUSEA [None]
  - SINUS TACHYCARDIA [None]
  - TRANSPLANT REJECTION [None]
  - URINARY TRACT INFECTION [None]
  - VOMITING [None]
